FAERS Safety Report 15106334 (Version 3)
Quarter: 2020Q3

REPORT INFORMATION
  Report Type: Spontaneous
  Country: PT (occurrence: PT)
  Receive Date: 20180704
  Receipt Date: 20200811
  Transmission Date: 20201102
  Serious: Yes (Other)
  Sender: FDA-Public Use
  Company Number: PT-PFIZER INC-2018267073

PATIENT
  Age: 16 Year
  Sex: Male

DRUGS (6)
  1. TESTOSTERONE ENANTATE [Concomitant]
     Active Substance: TESTOSTERONE
     Indication: DELAYED PUBERTY
  2. SOMATROPIN. [Suspect]
     Active Substance: SOMATROPIN
     Dosage: AT THE AGE OF 19, 0.42 MG/M2/ DAY
     Dates: end: 201607
  3. TESTOSTERONE ENANTATE [Concomitant]
     Active Substance: TESTOSTERONE
     Indication: PRADER-WILLI SYNDROME
     Dosage: 100 MG, EVERY 28 DAYS, STARTED AT 17 YEARS OF AGE
     Route: 030
     Dates: end: 201601
  4. VALPROIC ACID. [Concomitant]
     Active Substance: VALPROIC ACID
     Indication: PRADER-WILLI SYNDROME
     Dosage: UNK
  5. SOMATROPIN. [Suspect]
     Active Substance: SOMATROPIN
     Indication: PRADER-WILLI SYNDROME
     Dosage: AT THE AGE OF 16, 0.63 MG/M2/ DAY
  6. METHYLPHENIDATE. [Concomitant]
     Active Substance: METHYLPHENIDATE
     Indication: PRADER-WILLI SYNDROME

REACTIONS (6)
  - Obesity [Unknown]
  - Sleep apnoea syndrome [Unknown]
  - Impulsive behaviour [Unknown]
  - Aggression [Unknown]
  - Insulin resistance [Unknown]
  - Stubbornness [Unknown]
